FAERS Safety Report 9339478 (Version 1)
Quarter: 2013Q2

REPORT INFORMATION
  Report Type: Spontaneous
  Country: US (occurrence: None)
  Receive Date: 20130607
  Receipt Date: 20130607
  Transmission Date: 20140414
  Serious: Yes (Hospitalization)
  Sender: FDA-Public Use
  Company Number: None

PATIENT
  Age: 59 Year
  Sex: Male

DRUGS (6)
  1. PEGASYS [Suspect]
     Indication: HEPATITIS C
     Route: 058
     Dates: start: 20130115
  2. RIBAVIRIN [Suspect]
     Indication: HEPATITIS C
     Route: 048
     Dates: start: 20130213
  3. TUMS [Concomitant]
  4. AMLODIPINE [Concomitant]
  5. RIBAVIRIN 200 MG (ZYDUS) [Concomitant]
  6. VICTRELIS [Concomitant]

REACTIONS (3)
  - Chest pain [None]
  - Feeling abnormal [None]
  - Hypotension [None]
